FAERS Safety Report 5952755-2 (Version None)
Quarter: 2008Q4

REPORT INFORMATION
  Report Type: 
  Country: None (occurrence: None)
  Receive Date: 20081114
  Receipt Date: 20081107
  Transmission Date: 20090506
  Serious: No
  Sender: FDA-Public Use
  Company Number: US-B.I. PHARMACEUTICALS,INC./RIDGEFIELD-2008-BP-16973BP

PATIENT
  Age: 9 Year
  Sex: Female

DRUGS (2)
  1. CATAPRES-TTS-1 [Suspect]
     Indication: AUTISM
     Dosage: .1MG
     Route: 061
     Dates: start: 20081031
  2. CATAPRES-TTS-1 [Suspect]
     Indication: ABNORMAL BEHAVIOUR

REACTIONS (1)
  - SOMNOLENCE [None]
